FAERS Safety Report 6498111-2 (Version None)
Quarter: 2009Q4

REPORT INFORMATION
  Report Type: 
  Country: None (occurrence: None)
  Receive Date: 20091215
  Receipt Date: 20091202
  Transmission Date: 20100525
  Serious: Yes (Disabling, Other)
  Sender: FDA-Public Use
  Company Number: US-ELI_LILLY_AND_COMPANY-US200912001075

PATIENT
  Sex: Male

DRUGS (1)
  1. CYMBALTA [Suspect]
     Indication: NEUROPATHY PERIPHERAL
     Dosage: 60 MG, DAILY (1/D)
     Dates: start: 20080601

REACTIONS (4)
  - FALL [None]
  - GAIT DISTURBANCE [None]
  - OFF LABEL USE [None]
  - PAIN IN EXTREMITY [None]
